FAERS Safety Report 8370585-1 (Version None)
Quarter: 2012Q2

REPORT INFORMATION
  Report Type: 
  Country: None (occurrence: None)
  Receive Date: 20120517
  Receipt Date: 20120503
  Transmission Date: 20120825
  Serious: Yes (Hospitalization)
  Sender: FDA-Public Use
  Company Number: JPI-P-021302

PATIENT
  Age: 37 Year
  Sex: Female

DRUGS (3)
  1. XYREM [Suspect]
     Indication: NARCOLEPSY
     Dosage: 6 GM (3 GM,2 IN 1 D),ORAL ; ORAL ; 7.5 GM (3.75 GM,2 IN 1 D)
     Route: 048
     Dates: start: 20061016
  2. XYREM [Suspect]
     Indication: NARCOLEPSY
     Dosage: 6 GM (3 GM,2 IN 1 D),ORAL ; ORAL ; 7.5 GM (3.75 GM,2 IN 1 D)
     Route: 048
     Dates: start: 20100223
  3. UNSPECIFIED MEDICATIONS [Concomitant]

REACTIONS (1)
  - GASTRIC BYPASS [None]
